FAERS Safety Report 8774028 (Version 2)
Quarter: 2012Q4

REPORT INFORMATION
  Report Type: 
  Country: US (occurrence: US)
  Receive Date: 20120908
  Receipt Date: 20121003
  Transmission Date: 20130627
  Serious: Yes (Hospitalization, Other)
  Sender: FDA-Public Use
  Company Number: US-009507513-1202USA01355

PATIENT

DRUGS (2)
  1. FOSAMAX [Suspect]
     Indication: OSTEOPENIA
     Dosage: 70 mg, UNK
     Route: 048
     Dates: start: 20090603
  2. ALENDRONATE SODIUM [Suspect]
     Dosage: 70 mg, UNK
     Route: 048
     Dates: start: 20100202

REACTIONS (13)
  - Femur fracture [Unknown]
  - Intramedullary rod insertion [Unknown]
  - Breast cancer [Unknown]
  - Foot fracture [Unknown]
  - Fall [Unknown]
  - Fall [Unknown]
  - Liver disorder [Unknown]
  - Salpingo-oophorectomy unilateral [Unknown]
  - Cyst [Unknown]
  - Adverse drug reaction [Unknown]
  - Foot operation [Unknown]
  - Osteoarthritis [Unknown]
  - Arthritis [Unknown]
